FAERS Safety Report 7573768 (Version 5)
Quarter: 2012Q4

REPORT INFORMATION
  Report Type: 
  Country: FR (occurrence: FR)
  Receive Date: 20100906
  Receipt Date: 20121030
  Transmission Date: 20130627
  Serious: Yes (Hospitalization, Other)
  Sender: FDA-Public Use
  Company Number: FR-BRISTOL-MYERS SQUIBB COMPANY-15264815

PATIENT
  Age: 35 Year
  Sex: Male
  Weight: 84 kg

DRUGS (4)
  1. REYATAZ [Suspect]
     Indication: HIV INFECTION
     Route: 048
     Dates: start: 20060808, end: 20090414
  2. NORVIR [Suspect]
     Indication: ANTIRETROVIRAL THERAPY
     Dates: start: 20060509
  3. TRUVADA [Suspect]
     Indication: ANTIRETROVIRAL THERAPY
     Dates: start: 20060509
  4. PREZISTA [Suspect]
     Indication: ANTIRETROVIRAL THERAPY

REACTIONS (4)
  - Calculus urinary [Recovered/Resolved]
  - Cholelithiasis [Unknown]
  - Hepatocellular injury [Unknown]
  - Cholecystitis [Unknown]
